FAERS Safety Report 19129856 (Version 3)
Quarter: 2021Q2

REPORT INFORMATION
  Report Type: Report from Study
  Country: None (occurrence: US)
  Receive Date: 20210414
  Receipt Date: 20210518
  Transmission Date: 20210717
  Serious: Yes (Other)
  Sender: FDA-Public Use
  Company Number: US-ABBVIE-21K-163-3854948-00

PATIENT
  Sex: Male

DRUGS (2)
  1. VENCLEXTA [Suspect]
     Active Substance: VENETOCLAX
     Indication: ACUTE MYELOID LEUKAEMIA
     Route: 048
     Dates: start: 20210324, end: 2021
  2. VENCLEXTA [Suspect]
     Active Substance: VENETOCLAX
     Indication: ACUTE MYELOID LEUKAEMIA
     Route: 048
     Dates: start: 20210326

REACTIONS (9)
  - Haemorrhage [Unknown]
  - Pain in extremity [Unknown]
  - Blood count abnormal [Unknown]
  - Abdominal pain upper [Not Recovered/Not Resolved]
  - Blood count abnormal [Unknown]
  - Abdominal discomfort [Not Recovered/Not Resolved]
  - Depressed mood [Unknown]
  - Hypophagia [Unknown]
  - Localised infection [Unknown]

NARRATIVE: CASE EVENT DATE: 2021
